FAERS Safety Report 5246731-5 (Version None)
Quarter: 2007Q1

REPORT INFORMATION
  Report Type: 
  Country: None (occurrence: None)
  Receive Date: 20070220
  Receipt Date: 20070207
  Transmission Date: 20070707
  Serious: No
  Sender: FDA-Public Use
  Company Number: 2006PV020562

PATIENT
  Age: 66 Year
  Sex: Male
  Weight: 114.3065 kg

DRUGS (16)
  1. BYETTA [Suspect]
     Indication: DIABETES MELLITUS NON-INSULIN-DEPENDENT
     Dosage: SEE IMAGE
     Route: 058
     Dates: start: 20060308, end: 20060407
  2. BYETTA [Suspect]
     Indication: DIABETES MELLITUS NON-INSULIN-DEPENDENT
     Dosage: SEE IMAGE
     Route: 058
     Dates: start: 20060408
  3. GLUCOVANCE [Concomitant]
  4. ASPIRIN [Concomitant]
  5. FLOMAX [Concomitant]
  6. WARFARIN SODIUM [Concomitant]
  7. LIPITOR [Concomitant]
  8. FUROSEMIDE [Concomitant]
  9. CHOLOR CON [Concomitant]
  10. LEXAPRO [Concomitant]
  11. CHROMAGEN [Concomitant]
  12. SYNTHROID [Concomitant]
  13. VERAPAMIL [Concomitant]
  14. FOLTX [Concomitant]
  15. ASCORBIC ACID [Concomitant]
  16. FOLIC ACID [Concomitant]

REACTIONS (7)
  - ATRIAL FIBRILLATION [None]
  - BLOOD GLUCOSE DECREASED [None]
  - COLD SWEAT [None]
  - HEART RATE IRREGULAR [None]
  - HYPERHIDROSIS [None]
  - URINARY TRACT OBSTRUCTION [None]
  - WEIGHT DECREASED [None]
